FAERS Safety Report 8542358-8 (Version None)
Quarter: 2012Q3

REPORT INFORMATION
  Report Type: 
  Country: None (occurrence: None)
  Receive Date: 20120726
  Receipt Date: 20110927
  Transmission Date: 20120928
  Serious: Yes (Other)
  Sender: FDA-Public Use
  Company Number: US-ASTRAZENECA-2011SE57965

PATIENT
  Age: 36 Year
  Sex: Male
  Weight: 77.1 kg

DRUGS (5)
  1. TESTIM [Concomitant]
  2. SEROQUEL XR [Suspect]
     Route: 048
     Dates: start: 20110801, end: 20110901
  3. SYNTHROID [Concomitant]
  4. CLONAZEPAM [Concomitant]
  5. CELEXA [Concomitant]

REACTIONS (10)
  - ABNORMAL BEHAVIOUR [None]
  - SPEECH DISORDER [None]
  - INSOMNIA [None]
  - DIZZINESS [None]
  - SUICIDAL IDEATION [None]
  - MANIA [None]
  - CONFUSIONAL STATE [None]
  - NASAL CONGESTION [None]
  - FATIGUE [None]
  - HYPERHIDROSIS [None]
